FAERS Safety Report 8495837-6 (Version None)
Quarter: 2012Q3

REPORT INFORMATION
  Report Type: 
  Country: None (occurrence: None)
  Receive Date: 20120709
  Receipt Date: 20120703
  Transmission Date: 20120928
  Serious: Yes (Hospitalization, Other)
  Sender: FDA-Public Use
  Company Number: PHEH2012US011415

PATIENT
  Sex: Female

DRUGS (30)
  1. TOPAMAX [Concomitant]
     Dosage: 2 DF, DAILY
  2. NOVOLOG [Concomitant]
  3. COREG [Concomitant]
  4. HYDROCODONE [Concomitant]
     Dosage: 10 MG, EVERY 4 HRS PRN
  5. CLONIDINE [Concomitant]
     Dosage: 0.1 MG, DAILY
  6. CARVEDILOL [Concomitant]
     Dosage: 2 DF, DAILY
  7. CELEXA [Concomitant]
     Dosage: 1 DF, DAILY
  8. CYMBALTA [Concomitant]
     Dosage: 1 DF, DAILY
  9. POTASSIUM CHLORIDE [Concomitant]
     Dosage: 1 DF, DAILY
  10. MULTI-VITAMINS [Concomitant]
  11. TRAZODONE HCL [Concomitant]
     Dosage: 1 DF, DAILY
  12. PLADIDINE [Concomitant]
  13. XANAX [Concomitant]
     Dosage: 1 MG, Q6H
  14. MIRAPEX [Concomitant]
     Dosage: 2 DF, DAILY
  15. IRON [Concomitant]
     Dosage: 27 MG, DAILY
  16. NOVOLOG [Concomitant]
     Dosage: 3 DF, DAILY
  17. CELEBREX [Concomitant]
     Dosage: 2 DF, DAILY
  18. NEXIUM [Concomitant]
     Dosage: 40 MG, DAILY
  19. NITROGLYCERIN [Concomitant]
  20. VOLTAREN [Concomitant]
     Dosage: 4 DF, DAILY
  21. D3 [Concomitant]
  22. ASCORBIC ACID [Concomitant]
     Dosage: 1000 MG, DAILY
  23. LOPID [Concomitant]
  24. ASPIRIN [Concomitant]
     Dosage: 325 MG, UNK
  25. COZAAR [Concomitant]
     Dosage: 100 MG, UNK
  26. VALTURNA [Suspect]
     Dosage: 1 DF, DAILY (300 MG ALIS AND 320 MG VALS)
  27. LEVEMIS [Concomitant]
     Dosage: 2 DF, DAILY
  28. LASIX [Concomitant]
     Dosage: 40 MG, DAILY
  29. VITAMIN B-12 [Concomitant]
     Dosage: 2500 MG, DAILY
  30. VEVIMER [Concomitant]

REACTIONS (10)
  - ROAD TRAFFIC ACCIDENT [None]
  - LIMB TRAUMATIC AMPUTATION [None]
  - NERVE INJURY [None]
  - DEPRESSION [None]
  - DYSPNOEA [None]
  - TREMOR [None]
  - ANAEMIA [None]
  - RESPIRATORY DISORDER [None]
  - COMA [None]
  - CEREBROVASCULAR ACCIDENT [None]
